FAERS Safety Report 25057726 (Version 1)
Quarter: 2025Q1

REPORT INFORMATION
  Report Type: Spontaneous
  Country: US (occurrence: US)
  Receive Date: 20250310
  Receipt Date: 20250310
  Transmission Date: 20250409
  Serious: Yes (Other)
  Sender: ASTELLAS
  Company Number: US-ASTELLAS-2025-AER-013477

PATIENT
  Age: 60 Year
  Sex: Male
  Weight: 106 kg

DRUGS (1)
  1. ENZALUTAMIDE [Suspect]
     Active Substance: ENZALUTAMIDE
     Indication: Hormone-dependent prostate cancer
     Route: 050

REACTIONS (3)
  - Malignant neoplasm progression [Unknown]
  - Urinary retention [Unknown]
  - Urine flow decreased [Unknown]
